FAERS Safety Report 5633842-5 (Version None)
Quarter: 2008Q1

REPORT INFORMATION
  Report Type: 
  Country: None (occurrence: None)
  Receive Date: 20080131
  Receipt Date: 20071127
  Transmission Date: 20080703
  Serious: No
  Sender: FDA-Public Use
  Company Number: 163-21880-07100120

PATIENT
  Age: 89 Year
  Sex: Female

DRUGS (1)
  1. REVLIMID [Suspect]
     Indication: MULTIPLE MYELOMA
     Dosage: 25 MG, DAILY 21/28 DAYS, ORAL
     Route: 048
     Dates: start: 20070801, end: 20071001

REACTIONS (3)
  - DECREASED APPETITE [None]
  - NAUSEA [None]
  - UNEVALUABLE EVENT [None]
